FAERS Safety Report 4864160-0 (Version None)
Quarter: 2005Q4

REPORT INFORMATION
  Report Type: 
  Country: None (occurrence: None)
  Receive Date: 20051222
  Receipt Date: 20051221
  Transmission Date: 20060501
  Serious: Yes (Hospitalization)
  Sender: FDA-Public Use
  Company Number: J200504344

PATIENT
  Age: 1 Year
  Sex: Male

DRUGS (3)
  1. SAWACILLIN [Suspect]
     Route: 048
     Dates: start: 20051212
  2. BIOFERMIN [Concomitant]
     Route: 048
  3. ZITHROMAX [Concomitant]

REACTIONS (2)
  - CSF PRESSURE INCREASED [None]
  - MUSCULAR WEAKNESS [None]
